FAERS Safety Report 23375264 (Version 1)
Quarter: 2024Q1

REPORT INFORMATION
  Report Type: Spontaneous
  Country: ES (occurrence: ES)
  Receive Date: 20240106
  Receipt Date: 20240106
  Transmission Date: 20240409
  Serious: Yes (Life-Threatening, Hospitalization)
  Sender: FDA-Public Use
  Company Number: None

PATIENT
  Age: 66 Year
  Sex: Female

DRUGS (7)
  1. ASCORBIC ACID\POTASSIUM BICARBONATE [Concomitant]
     Active Substance: ASCORBIC ACID\POTASSIUM BICARBONATE
     Indication: Prophylaxis
     Dosage: UNK (1 AL D?A HASTA EL 29/08, DESDE ENTONCES MEDIO LOS MARES Y VIERNES (A LA VEZ QUE BAJADA DE DOSIS
     Route: 048
     Dates: start: 20230721, end: 20230909
  2. COMBIGAN [Concomitant]
     Active Substance: BRIMONIDINE TARTRATE\TIMOLOL MALEATE
     Indication: Open angle glaucoma
     Dosage: 1 DRP, Q12H (1 GOTA CADA 12 HORAS)
     Route: 047
     Dates: start: 20230721
  3. TAGRISSO [Concomitant]
     Active Substance: OSIMERTINIB
     Indication: Lung carcinoma cell type unspecified stage IV
     Dosage: 80 MG, QD
     Route: 065
  4. AZOPT [Interacting]
     Active Substance: BRINZOLAMIDE
     Dosage: 1 DRP, Q12H
     Route: 047
     Dates: start: 20230829
  5. AZOPT [Interacting]
     Active Substance: BRINZOLAMIDE
     Indication: Open angle glaucoma
     Dosage: 1 DRP, Q12H (1 GOTA CADA 12 HORAS (SUPUESTAMENTE RETIRADO EL 10/08/2023 Y REINTRODUCCI?N EL 29/08 TR
     Route: 047
     Dates: start: 20230721, end: 20230810
  6. ACETAZOLAMIDE [Interacting]
     Active Substance: ACETAZOLAMIDE
     Dosage: 125 MG, Q12H
     Route: 048
     Dates: start: 20230829, end: 20230909
  7. ACETAZOLAMIDE [Interacting]
     Active Substance: ACETAZOLAMIDE
     Indication: Open angle glaucoma
     Dosage: 250 MG, Q8H (1 CADA 8 HORAS (REDUCEN DOSIS EL 29/08/2023 A 0.5 CADA 12 HORAS POR DIARREA) - RETIRADA
     Route: 048
     Dates: start: 20230721, end: 20230828

REACTIONS (4)
  - Metabolic acidosis [Recovered/Resolved]
  - Acute kidney injury [Recovered/Resolved]
  - Hyperkalaemia [Recovered/Resolved]
  - Diarrhoea [Recovered/Resolved]

NARRATIVE: CASE EVENT DATE: 20230830
